FAERS Safety Report 5477927-5 (Version None)
Quarter: 2007Q4

REPORT INFORMATION
  Report Type: 
  Country: None (occurrence: None)
  Receive Date: 20071005
  Receipt Date: 20071001
  Transmission Date: 20080405
  Serious: Yes (Life-Threatening, Other)
  Sender: FDA-Public Use
  Company Number: PHBS2007BR16292

PATIENT
  Age: 62 Year
  Sex: Female
  Weight: 63 kg

DRUGS (4)
  1. SIMVASTATIN [Concomitant]
     Dates: end: 20070301
  2. AMITRIL [Concomitant]
     Dates: end: 20070601
  3. TEGRETOL [Suspect]
     Indication: BIPOLAR DISORDER
     Dosage: 200 MG/DAY
     Route: 048
     Dates: start: 20020101
  4. TEGRETOL [Suspect]
     Dosage: 200 MG/DAY
     Route: 048
     Dates: start: 20070121, end: 20070301

REACTIONS (37)
  - ABDOMINAL DISCOMFORT [None]
  - ACCOMMODATION DISORDER [None]
  - AGGRESSION [None]
  - AGITATION [None]
  - ANAEMIA [None]
  - APHASIA [None]
  - ARRHYTHMIA [None]
  - ASTHENIA [None]
  - BLINDNESS [None]
  - BLISTER [None]
  - BLOOD PRESSURE INCREASED [None]
  - BRONCHIAL HYPERREACTIVITY [None]
  - CONFUSIONAL STATE [None]
  - COUGH [None]
  - CRYING [None]
  - DERMATITIS EXFOLIATIVE [None]
  - DRY MOUTH [None]
  - DYSGEUSIA [None]
  - FATIGUE [None]
  - FEELING ABNORMAL [None]
  - HEADACHE [None]
  - HEARING IMPAIRED [None]
  - MEMORY IMPAIRMENT [None]
  - MICTURITION FREQUENCY DECREASED [None]
  - MUSCLE SPASMS [None]
  - MYALGIA [None]
  - PAIN [None]
  - PYREXIA [None]
  - SKIN DISORDER [None]
  - SOMNOLENCE [None]
  - SPEECH DISORDER [None]
  - SUICIDAL IDEATION [None]
  - TINNITUS [None]
  - TREMOR [None]
  - URTICARIA [None]
  - VERTIGO [None]
  - WEIGHT INCREASED [None]
